FAERS Safety Report 6255182-6 (Version None)
Quarter: 2009Q3

REPORT INFORMATION
  Report Type: 
  Country: None (occurrence: None)
  Receive Date: 20090702
  Receipt Date: 20090622
  Transmission Date: 20100115
  Serious: Yes (Hospitalization)
  Sender: FDA-Public Use
  Company Number: FR-PFIZER INC-2009194420

PATIENT
  Age: 66 Year

DRUGS (12)
  1. LYRICA [Suspect]
     Indication: NEURALGIA
     Dosage: 25 MG, 2X/DAY
     Route: 048
     Dates: start: 20090401, end: 20090403
  2. TAHOR [Concomitant]
     Indication: HYPERCHOLESTEROLAEMIA
     Dosage: 10 MG, 1X/DAY
     Route: 048
  3. SPAGULAX [Concomitant]
  4. IMPORTAL [Concomitant]
     Indication: CONSTIPATION
     Dosage: 10 G, 1X/DAY
     Route: 048
  5. ZOLPIDEM TARTRATE [Concomitant]
     Indication: INSOMNIA
     Dosage: 10 MG, 1X/DAY
     Route: 048
  6. LEVOTHYROX [Concomitant]
     Indication: HYPOTHYROIDISM
     Dosage: 100 UG, 1X/DAY
     Route: 048
  7. PHLOROGLUCINOL [Concomitant]
     Indication: ABDOMINAL PAIN
     Dosage: 80 MG, AS NEEDED
     Route: 048
  8. LEXOMIL [Concomitant]
     Dosage: 0.25 DF, 1X/DAY
  9. VOLTAREN [Concomitant]
  10. TRAMADOL HYDROCHLORIDE AND ACETAMINOPHEN [Concomitant]
  11. MICROLAX [Concomitant]
  12. DIFRAREL [Concomitant]

REACTIONS (3)
  - ASTHENIA [None]
  - CHEST DISCOMFORT [None]
  - TACHYCARDIA [None]
